FAERS Safety Report 5646105-9 (Version None)
Quarter: 2008Q1

REPORT INFORMATION
  Report Type: 
  Country: None (occurrence: None)
  Receive Date: 20080229
  Receipt Date: 20080218
  Transmission Date: 20080703
  Serious: Yes (Other)
  Sender: FDA-Public Use
  Company Number: BE-PFIZER INC-2008016614

PATIENT
  Sex: Female

DRUGS (1)
  1. CHANTIX [Suspect]
     Route: 048
     Dates: start: 20080101, end: 20080216

REACTIONS (3)
  - ABDOMINAL DISTENSION [None]
  - EYE OEDEMA [None]
  - OEDEMA PERIPHERAL [None]
